FAERS Safety Report 16961386 (Version 1)
Quarter: 2019Q4

REPORT INFORMATION
  Report Type: Spontaneous
  Country: US (occurrence: US)
  Receive Date: 20191025
  Receipt Date: 20191025
  Transmission Date: 20200122
  Serious: Yes (Hospitalization, Other)
  Sender: FDA-Public Use
  Company Number: US-RECKITT BENCKISER HEALTHCARE INT LIMITED-RB-91413-2019

PATIENT
  Age: 27 Year
  Sex: Male

DRUGS (1)
  1. DEXTROMETHORPHAN [Suspect]
     Active Substance: DEXTROMETHORPHAN
     Indication: PRODUCT USED FOR UNKNOWN INDICATION
     Dosage: UNK, PATIENT CONSUMED 4 BOTTLES (150 ML EACH)
     Route: 048

REACTIONS (12)
  - Abdominal pain [Recovered/Resolved]
  - Eosinophilia [Recovered/Resolved]
  - Mucosal inflammation [Recovered/Resolved]
  - Atrophy [Recovered/Resolved]
  - Colitis ischaemic [Recovered/Resolved]
  - Diarrhoea haemorrhagic [Recovered/Resolved]
  - Abdominal tenderness [Recovered/Resolved]
  - Mucosal necrosis [Recovered/Resolved]
  - Gastrointestinal wall thickening [Recovered/Resolved]
  - Overdose [Recovered/Resolved]
  - Haematochezia [Recovered/Resolved]
  - Gastrointestinal sounds abnormal [Recovered/Resolved]
